FAERS Safety Report 13832803 (Version 1)
Quarter: 2017Q3

REPORT INFORMATION
  Report Type: Spontaneous
  Country: US (occurrence: US)
  Receive Date: 20170803
  Receipt Date: 20170803
  Transmission Date: 20171127
  Serious: No
  Sender: FDA-Public Use
  Company Number: US-ROCHE-660926

PATIENT
  Sex: Female

DRUGS (1)
  1. BONIVA [Suspect]
     Active Substance: IBANDRONATE SODIUM
     Indication: PRODUCT USED FOR UNKNOWN INDICATION
     Dosage: RECEIVED ONLY ONE DOSE
     Route: 065

REACTIONS (13)
  - Muscle spasms [Unknown]
  - Arthralgia [Not Recovered/Not Resolved]
  - Diarrhoea [Unknown]
  - Chest pain [Not Recovered/Not Resolved]
  - Lymphadenopathy [Unknown]
  - Renal pain [Unknown]
  - Influenza like illness [Unknown]
  - Pain in jaw [Not Recovered/Not Resolved]
  - Back pain [Not Recovered/Not Resolved]
  - Abdominal pain upper [Unknown]
  - Pain [Unknown]
  - Myalgia [Not Recovered/Not Resolved]
  - Lymph node pain [Not Recovered/Not Resolved]

NARRATIVE: CASE EVENT DATE: 20090930
